FAERS Safety Report 6015867-3 (Version None)
Quarter: 2008Q4

REPORT INFORMATION
  Report Type: 
  Country: None (occurrence: None)
  Receive Date: 20081222
  Receipt Date: 20081219
  Transmission Date: 20090506
  Serious: Yes (Death)
  Sender: FDA-Public Use
  Company Number: A0761181A

PATIENT
  Age: 78 Year
  Sex: Female
  Weight: 59.1 kg

DRUGS (5)
  1. AVANDIA [Suspect]
     Route: 048
     Dates: start: 20060101, end: 20060901
  2. MELOXICAM [Concomitant]
  3. VITAMINS [Concomitant]
  4. TRAZODONE [Concomitant]
  5. LEVOTHYROXINE SODIUM [Concomitant]

REACTIONS (1)
  - MYOCARDIAL INFARCTION [None]
